FAERS Safety Report 9779957 (Version 4)
Quarter: 2014Q1

REPORT INFORMATION
  Report Type: Spontaneous
  Country: BR (occurrence: BR)
  Receive Date: 20131223
  Receipt Date: 20140108
  Transmission Date: 20141002
  Serious: Yes (Life-Threatening, Other)
  Sender: FDA-Public Use
  Company Number: BR-PFIZER INC-2013337262

PATIENT
  Sex: Female

DRUGS (1)
  1. CELEBRA [Suspect]
     Indication: MUSCULOSKELETAL PAIN
     Dosage: ^4 TABLETS^, UNK
     Route: 048
     Dates: start: 20131119, end: 20131122

REACTIONS (12)
  - Suspected counterfeit product [Unknown]
  - Apparent death [Unknown]
  - Aphonia [Unknown]
  - Dyspnoea [Unknown]
  - Throat tightness [Unknown]
  - Musculoskeletal pain [Not Recovered/Not Resolved]
  - Tachycardia [Unknown]
  - Oropharyngeal pain [Unknown]
  - Throat lesion [Unknown]
  - Mouth injury [Unknown]
  - Depressed mood [Unknown]
  - Feeling abnormal [Unknown]
